FAERS Safety Report 23260309 (Version 1)
Quarter: 2023Q4

REPORT INFORMATION
  Report Type: Spontaneous
  Country: CO (occurrence: CO)
  Receive Date: 20231204
  Receipt Date: 20231204
  Transmission Date: 20240109
  Serious: Yes (Death, Other)
  Sender: FDA-Public Use
  Company Number: CO-BAXTER-2023BAX036891

PATIENT
  Age: 24 Year
  Sex: Male

DRUGS (2)
  1. SODIUM CHLORIDE [Suspect]
     Active Substance: SODIUM CHLORIDE
     Indication: Medication dilution
     Dosage: 90 CC OF SALINE SOLUTION ADMINISTERED AT A DRIP RATE OF 2 CC PER HOUR
     Route: 041
     Dates: start: 20231118, end: 20231118
  2. HYDROMORPHONE [Suspect]
     Active Substance: HYDROMORPHONE
     Dosage: 10 AMPUOLES IN 90 CC OF SODIUM CHLORIDE ADMINISTERED AT A DRIP RATE OF 2 CC PER HOUR
     Route: 041
     Dates: start: 20231118, end: 20231118

REACTIONS (3)
  - Death [Fatal]
  - Incorrect drug administration rate [Unknown]
  - Device information output issue [Unknown]

NARRATIVE: CASE EVENT DATE: 20231118
